FAERS Safety Report 13967161 (Version 1)
Quarter: 2017Q3

REPORT INFORMATION
  Report Type: Spontaneous
  Country: US (occurrence: US)
  Receive Date: 20170914
  Receipt Date: 20170914
  Transmission Date: 20171128
  Serious: No
  Sender: FDA-Public Use
  Company Number: US-AUROBINDO-AUR-APL-2013-01216

PATIENT

DRUGS (2)
  1. PAROXETINE TABLETS USP 10 MG [Suspect]
     Active Substance: PAROXETINE
     Indication: DEPRESSION
     Dosage: 10 MG,ONCE A DAY,
     Route: 065
  2. PAROXETINE TABLETS USP 10 MG [Suspect]
     Active Substance: PAROXETINE
     Indication: ANXIETY

REACTIONS (2)
  - Panic attack [Recovered/Resolved]
  - Anxiety [Recovered/Resolved]
